FAERS Safety Report 5106840-8 (Version None)
Quarter: 2006Q3

REPORT INFORMATION
  Report Type: 
  Country: None (occurrence: None)
  Receive Date: 20060912
  Receipt Date: 20060822
  Transmission Date: 20061208
  Serious: Yes (Life-Threatening)
  Sender: FDA-Public Use
  Company Number: 001#1#2006-00349

PATIENT
  Age: 86 Year
  Sex: Male

DRUGS (6)
  1. ISOKET-RETARD-40 (ISOSORBIDE DINITRATE) [Suspect]
     Indication: CARDIAC DISORDER
     Dosage: 40 MG (40 MG 1 IN 1 DAY (S)), ORAL
     Route: 048
  2. BISOPROLOL FUMARATE [Concomitant]
  3. NIFEDIPINE [Concomitant]
  4. METFORMIN HCL [Concomitant]
  5. ESOMEPRAZOLE MAGNESIUM [Concomitant]
  6. ASPIRIN [Concomitant]

REACTIONS (6)
  - AMAUROSIS [None]
  - BLINDNESS TRANSIENT [None]
  - CHROMATOPSIA [None]
  - FOREIGN BODY TRAUMA [None]
  - IMPAIRED DRIVING ABILITY [None]
  - ROAD TRAFFIC ACCIDENT [None]
